FAERS Safety Report 25621258 (Version 1)
Quarter: 2025Q3

REPORT INFORMATION
  Report Type: Spontaneous
  Country: EU (occurrence: EU)
  Receive Date: 20250730
  Receipt Date: 20250730
  Transmission Date: 20251021
  Serious: Yes (Other)
  Sender: NOVARTIS
  Company Number: EU-002147023-NVSC2025GR118779

PATIENT
  Age: 66 Year
  Sex: Male

DRUGS (1)
  1. PLUVICTO [Suspect]
     Active Substance: LUTETIUM LU-177 VIPIVOTIDE TETRAXETAN
     Indication: Hormone-refractory prostate cancer
     Route: 042

REACTIONS (4)
  - Hormone-refractory prostate cancer [Recovering/Resolving]
  - Malignant neoplasm progression [Recovering/Resolving]
  - Prostatic specific antigen increased [Recovering/Resolving]
  - Off label use [Recovering/Resolving]
